FAERS Safety Report 9552221 (Version 1)
Quarter: 2013Q3

REPORT INFORMATION
  Report Type: Spontaneous
  Country: MY (occurrence: MY)
  Receive Date: 20130925
  Receipt Date: 20130925
  Transmission Date: 20140515
  Serious: Yes (Other)
  Sender: FDA-Public Use
  Company Number: PHHY2013MY104764

PATIENT
  Sex: Female

DRUGS (2)
  1. WARFARIN [Suspect]
     Indication: ANTICOAGULANT THERAPY
     Dosage: 3-4 MG
  2. ENOXAPARIN SANOFI-AVENTIS [Suspect]
     Indication: ANTICOAGULANT THERAPY
     Dosage: 100 MG PLUS 80 MG PM(TWICE DAILY DOSE)
     Dates: start: 2007

REACTIONS (3)
  - Induced labour [Unknown]
  - Foetal growth restriction [Unknown]
  - Maternal exposure during pregnancy [Unknown]
